FAERS Safety Report 4393347-9 (Version None)
Quarter: 2004Q3

REPORT INFORMATION
  Report Type: 
  Country: None (occurrence: None)
  Receive Date: 20040709
  Receipt Date: 20040611
  Transmission Date: 20050211
  Serious: Yes (Death)
  Sender: FDA-Public Use
  Company Number: PHBS2004JP07737

PATIENT
  Age: 47 Year
  Sex: Male

DRUGS (6)
  1. DIOVAN [Suspect]
     Dosage: 80 MG/DAY
     Route: 048
     Dates: start: 20011210
  2. LIPITOR [Concomitant]
     Indication: TYPE IIA HYPERLIPIDAEMIA
     Route: 048
  3. 8-HOUR BAYER [Suspect]
     Indication: MYOCARDIAL ISCHAEMIA
     Dosage: 100 MG, QD
     Route: 048
     Dates: start: 20011210
  4. ETHYL ICOSAPENTATE [Suspect]
     Indication: ARTERIOSCLEROSIS
     Dosage: 1800 MG/DAY
     Route: 048
     Dates: start: 20040204
  5. HERBAL PREPARATION [Suspect]
     Indication: HYPERTENSION
     Dosage: 7.5 G/DAY
     Route: 048
     Dates: start: 20040319
  6. LOCHOL [Concomitant]
     Indication: HYPERLIPIDAEMIA
     Dosage: UNK, UNK
     Route: 048

REACTIONS (1)
  - MYOCARDIAL INFARCTION [None]
